FAERS Safety Report 19092198 (Version 1)
Quarter: 2021Q2

REPORT INFORMATION
  Report Type: Other
  Country: CN (occurrence: CN)
  Receive Date: 20210405
  Receipt Date: 20210405
  Transmission Date: 20210717
  Serious: Yes (Other)
  Sender: FDA-Public Use
  Company Number: CN-ROCHE-2797525

PATIENT

DRUGS (3)
  1. CISPLATIN. [Suspect]
     Active Substance: CISPLATIN
     Indication: NON-SMALL CELL LUNG CANCER
     Dosage: ON DAY1, 4 WEEKS FOR 1 COURSE, 4 COURSES IN TOTAL
     Route: 041
  2. PEMETREXED. [Suspect]
     Active Substance: PEMETREXED
     Indication: NON-SMALL CELL LUNG CANCER
     Dosage: ON DAY1, 4 WEEKS FOR 1 COURSE, 4 COURSES IN TOTAL
     Route: 041
  3. BEVACIZUMAB. [Suspect]
     Active Substance: BEVACIZUMAB
     Indication: NON-SMALL CELL LUNG CANCER
     Dosage: ON DAY1, 4 WEEKS FOR 1 COURSE, 4 COURSES IN TOTAL
     Route: 041

REACTIONS (1)
  - Renal impairment [Unknown]
